FAERS Safety Report 24778146 (Version 1)
Quarter: 2024Q4

REPORT INFORMATION
  Report Type: Spontaneous
  Country: NZ (occurrence: NZ)
  Receive Date: 20241226
  Receipt Date: 20241226
  Transmission Date: 20250115
  Serious: Yes (Other)
  Sender: ORGANON
  Company Number: None

PATIENT
  Age: 29 Year
  Sex: Male

DRUGS (1)
  1. FINASTERIDE [Suspect]
     Active Substance: FINASTERIDE
     Dosage: UNK

REACTIONS (21)
  - Testicular atrophy [Unknown]
  - Suicidal ideation [Unknown]
  - Erectile dysfunction [Unknown]
  - Mental impairment [Unknown]
  - Genital hypoaesthesia [Unknown]
  - Penile size reduced [Unknown]
  - Ejaculation disorder [Unknown]
  - Semen volume decreased [Unknown]
  - Male orgasmic disorder [Unknown]
  - Organic erectile dysfunction [Unknown]
  - Tinnitus [Unknown]
  - Loss of libido [Unknown]
  - Gynaecomastia [Unknown]
  - Skin atrophy [Unknown]
  - Dry skin [Unknown]
  - Body temperature decreased [Unknown]
  - Asteatosis [Unknown]
  - Muscle atrophy [Unknown]
  - Bradyphrenia [Unknown]
  - Memory impairment [Unknown]
  - Anhedonia [Unknown]
